FAERS Safety Report 5926497-3 (Version None)
Quarter: 2008Q4

REPORT INFORMATION
  Report Type: 
  Country: None (occurrence: None)
  Receive Date: 20081022
  Receipt Date: 20081017
  Transmission Date: 20090506
  Serious: Yes (Death)
  Sender: FDA-Public Use
  Company Number: PHHY2008MX25208

PATIENT
  Age: 91 Year
  Sex: Male

DRUGS (1)
  1. EXFORGE [Suspect]
     Indication: HYPERTENSION
     Dosage: 1 TABLET (160 MG VALSARTAN/5 MG AMLODIPINE) DAILY

REACTIONS (2)
  - MYASTHENIA GRAVIS [None]
  - RESPIRATORY ARREST [None]
